FAERS Safety Report 6625675-8 (Version None)
Quarter: 2010Q1

REPORT INFORMATION
  Report Type: 
  Country: None (occurrence: None)
  Receive Date: 20100310
  Receipt Date: 20100304
  Transmission Date: 20100710
  Serious: Yes (Death)
  Sender: FDA-Public Use
  Company Number: US-ELI_LILLY_AND_COMPANY-US201003002156

PATIENT
  Sex: Female

DRUGS (3)
  1. GEMCITABINE HCL [Suspect]
     Indication: NEOPLASM MALIGNANT
     Dosage: 800 MG/M2, DAYS 1 AND 8 EVERY 21 DAYS
  2. PERTUZUMAB [Concomitant]
     Indication: NEOPLASM MALIGNANT
     Dosage: 840 MG, LOADING DOSE
     Route: 042
  3. PERTUZUMAB [Concomitant]
     Dosage: 420 MG, EVERY 3 WEEKS

REACTIONS (3)
  - CLOSTRIDIUM DIFFICILE COLITIS [None]
  - HYDRONEPHROSIS [None]
  - SEPSIS [None]
